FAERS Safety Report 19292848 (Version 1)
Quarter: 2021Q2

REPORT INFORMATION
  Report Type: Spontaneous
  Country: US (occurrence: US)
  Receive Date: 20210524
  Receipt Date: 20210524
  Transmission Date: 20210717
  Serious: No
  Sender: FDA-Public Use
  Company Number: US-TEVA-2021-US-1908579

PATIENT
  Age: 62 Year
  Sex: Male
  Weight: 95.25 kg

DRUGS (3)
  1. ALBUTEROL SULFATE HFA 90 MCG [Concomitant]
     Active Substance: ALBUTEROL SULFATE
  2. AUSTEDO [Suspect]
     Active Substance: DEUTETRABENAZINE
     Route: 048
     Dates: start: 20210401
  3. BREO ELLIPTA [Concomitant]
     Active Substance: FLUTICASONE FUROATE\VILANTEROL TRIFENATATE

REACTIONS (3)
  - Insomnia [Not Recovered/Not Resolved]
  - Painful erection [Not Recovered/Not Resolved]
  - Erection increased [Not Recovered/Not Resolved]

NARRATIVE: CASE EVENT DATE: 202104
